FAERS Safety Report 9706655 (Version 2)
Quarter: 2013Q4

REPORT INFORMATION
  Report Type: Spontaneous
  Country: US (occurrence: US)
  Receive Date: 20131125
  Receipt Date: 20131129
  Transmission Date: 20140711
  Serious: Yes (Hospitalization)
  Sender: FDA-Public Use
  Company Number: US-JNJFOC-20131110747

PATIENT
  Age: 68 Year
  Sex: Male
  Weight: 68.49 kg

DRUGS (1)
  1. DURAGESIC [Suspect]
     Indication: PAIN
     Route: 062
     Dates: start: 201311

REACTIONS (2)
  - Nephrolithiasis [Recovered/Resolved]
  - Product adhesion issue [Unknown]
